FAERS Safety Report 5505233-9 (Version None)
Quarter: 2007Q4

REPORT INFORMATION
  Report Type: 
  Country: None (occurrence: None)
  Receive Date: 20071102
  Receipt Date: 20070730
  Transmission Date: 20080405
  Serious: No
  Sender: FDA-Public Use
  Company Number: US-KINGPHARMUSA00001-K200700956

PATIENT

DRUGS (3)
  1. MENEST [Suspect]
     Indication: HORMONE REPLACEMENT THERAPY
     Dosage: 1.25 MG, QD
     Route: 048
     Dates: start: 20041101, end: 20061101
  2. PRILOSEC   /00661201/ [Concomitant]
     Route: 048
  3. CLARITIN                           /00917501/ [Concomitant]
     Route: 048

REACTIONS (1)
  - METRORRHAGIA [None]
